FAERS Safety Report 9026069 (Version 1)
Quarter: 2013Q1

REPORT INFORMATION
  Report Type: Spontaneous
  Country: US (occurrence: None)
  Receive Date: 20130107
  Receipt Date: 20130107
  Transmission Date: 20140127
  Serious: Yes (Other)
  Sender: FDA-Public Use
  Company Number: 2012P1066272

PATIENT
  Sex: Female

DRUGS (1)
  1. PHENAZOPYRIDINE HYDROCHLORIDE [Suspect]
     Indication: URINARY TRACT INFECTION
     Dates: start: 20121202, end: 20121203

REACTIONS (3)
  - Pruritus [None]
  - Erythema [None]
  - Wheezing [None]
